FAERS Safety Report 5758908-0 (Version None)
Quarter: 2008Q2

REPORT INFORMATION
  Report Type: 
  Country: None (occurrence: None)
  Receive Date: 20080604
  Receipt Date: 20080528
  Transmission Date: 20081010
  Serious: Yes (Other)
  Sender: FDA-Public Use
  Company Number: PHHY2008JP05819

PATIENT
  Sex: Female
  Weight: 42 kg

DRUGS (9)
  1. ZOMETA [Suspect]
     Indication: METASTASES TO BONE
     Dosage: 4 MG, QMO
     Route: 042
     Dates: start: 20060725, end: 20080304
  2. FEMARA [Concomitant]
     Dosage: 2.5 MG/DAY
     Route: 048
     Dates: start: 20070424
  3. MS CONTIN [Concomitant]
     Dosage: 60 MG, UNK
     Route: 048
     Dates: start: 20051208
  4. GLYSENNID [Concomitant]
     Dosage: 24 MG, UNK
     Route: 048
     Dates: start: 20070605
  5. LAXOBERON [Concomitant]
     Dosage: 0.5 ML, UNK
     Route: 048
     Dates: start: 20070731
  6. FERROMIA [Concomitant]
     Indication: ANAEMIA
     Dosage: 100 MG, UNK
     Route: 048
     Dates: start: 20061114, end: 20080121
  7. NAVELBINE [Concomitant]
     Dosage: 35 MG, UNK
     Route: 042
     Dates: start: 20060905, end: 20070417
  8. XELODA [Concomitant]
     Indication: ANAEMIA
     Dosage: 1800 MG, UNK
     Route: 048
     Dates: start: 20051110, end: 20060801
  9. ENDOXAN [Concomitant]
     Dosage: 100 MG, UNK
     Route: 048
     Dates: start: 20060202, end: 20060801

REACTIONS (14)
  - BLOOD ALKALINE PHOSPHATASE INCREASED [None]
  - BLOOD LACTATE DEHYDROGENASE DECREASED [None]
  - GAMMA-GLUTAMYLTRANSFERASE INCREASED [None]
  - HAEMATOCRIT DECREASED [None]
  - HAEMOGLOBIN DECREASED [None]
  - IMPAIRED HEALING [None]
  - JAW DISORDER [None]
  - OSTEONECROSIS [None]
  - PERIODONTAL DISEASE [None]
  - RED BLOOD CELL COUNT DECREASED [None]
  - SEQUESTRECTOMY [None]
  - TOOTH DISORDER [None]
  - TOOTH EXTRACTION [None]
  - WHITE BLOOD CELL COUNT DECREASED [None]
